FAERS Safety Report 7176689-3 (Version None)
Quarter: 2010Q4

REPORT INFORMATION
  Report Type: 
  Country: None (occurrence: None)
  Receive Date: 20101216
  Receipt Date: 20101216
  Transmission Date: 20110411
  Serious: Yes (Hospitalization)
  Sender: FDA-Public Use
  Company Number: None

PATIENT
  Age: 44 Year
  Sex: Female
  Weight: 76.6579 kg

DRUGS (1)
  1. MIRENA [Suspect]
     Dates: start: 20051201, end: 20101220

REACTIONS (3)
  - MUSCLE SPASMS [None]
  - OVARIAN CYST [None]
  - VOMITING [None]
